FAERS Safety Report 5753863-1 (Version None)
Quarter: 2008Q2

REPORT INFORMATION
  Report Type: 
  Country: None (occurrence: None)
  Receive Date: 20080530
  Receipt Date: 20080519
  Transmission Date: 20081010
  Serious: Yes (Death, Hospitalization, Congenital Anomaly)
  Sender: FDA-Public Use
  Company Number: A0388686B

PATIENT
  Sex: Male
  Weight: 2.5 kg

DRUGS (1)
  1. PAXIL [Suspect]
     Indication: ANXIETY
     Dosage: 20MG PER DAY
     Dates: start: 19990101, end: 20020608

REACTIONS (44)
  - ATRIAL SEPTAL DEFECT [None]
  - BRADYCARDIA [None]
  - CARDIAC FAILURE [None]
  - CARDIAC FAILURE CONGESTIVE [None]
  - CARDIAC MURMUR [None]
  - CARDIAC VALVE DISEASE [None]
  - CARDIOGENIC SHOCK [None]
  - CARDIOMEGALY [None]
  - COAGULOPATHY [None]
  - CONGENITAL HEART VALVE DISORDER [None]
  - CONGENITAL TRICUSPID VALVE INCOMPETENCE [None]
  - CORONARY ARTERY DILATATION [None]
  - DILATATION VENTRICULAR [None]
  - DISSEMINATED INTRAVASCULAR COAGULATION [None]
  - DRUG EXPOSURE DURING PREGNANCY [None]
  - EATING DISORDER [None]
  - FAILURE TO THRIVE [None]
  - HAEMODYNAMIC INSTABILITY [None]
  - HEART DISEASE CONGENITAL [None]
  - HYPOCHLORAEMIA [None]
  - HYPONATRAEMIA [None]
  - HYPOTENSION [None]
  - LEFT VENTRICULAR HYPERTROPHY [None]
  - METABOLIC ACIDOSIS [None]
  - MITRAL VALVE STENOSIS [None]
  - MULTI-ORGAN FAILURE [None]
  - PATENT DUCTUS ARTERIOSUS [None]
  - PREMATURE LABOUR [None]
  - PULMONARY HYPERTENSION [None]
  - PULMONARY HYPOPLASIA [None]
  - PULMONARY OEDEMA [None]
  - PULMONARY VALVE INCOMPETENCE [None]
  - PYREXIA [None]
  - RENAL FAILURE [None]
  - RESPIRATORY DISTRESS [None]
  - RESPIRATORY FAILURE [None]
  - RIGHT ATRIAL DILATATION [None]
  - SEPSIS [None]
  - SEPTIC SHOCK [None]
  - SUPRAVENTRICULAR TACHYCARDIA [None]
  - TACHYPNOEA [None]
  - TRICUSPID VALVE DISEASE [None]
  - TRICUSPID VALVE INCOMPETENCE [None]
  - WHITE BLOOD CELL COUNT INCREASED [None]
